FAERS Safety Report 4991113-4 (Version None)
Quarter: 2006Q2

REPORT INFORMATION
  Report Type: 
  Country: None (occurrence: None)
  Receive Date: 20060428
  Receipt Date: 20060420
  Transmission Date: 20061013
  Serious: Yes (Other)
  Sender: FDA-Public Use
  Company Number: GXKR2006JP02141

PATIENT
  Age: 66 Year
  Sex: Male

DRUGS (5)
  1. RIFAMPICIN [Suspect]
     Indication: TUBERCULOSIS
     Dates: start: 20021229
  2. ISONIAZID [Concomitant]
  3. ETHAMBUTOL (ETHAMBUTOL) [Concomitant]
  4. PYRAZINAMIDE [Concomitant]
  5. LEVOFLOXACIN [Concomitant]

REACTIONS (2)
  - C-REACTIVE PROTEIN INCREASED [None]
  - PNEUMONIA [None]
